FAERS Safety Report 11485079 (Version 1)
Quarter: 2015Q3

REPORT INFORMATION
  Report Type: Spontaneous
  Country: US (occurrence: US)
  Receive Date: 20150903
  Receipt Date: 20150903
  Transmission Date: 20151125
  Serious: No
  Sender: FDA-Public Use
  Company Number: US-ELI_LILLY_AND_COMPANY-US201209003085

PATIENT
  Sex: Female

DRUGS (5)
  1. METHADONE HYDROCHLORIDE. [Concomitant]
     Active Substance: METHADONE HYDROCHLORIDE
  2. HYDROCHLOROTHIAZIDE. [Concomitant]
     Active Substance: HYDROCHLOROTHIAZIDE
  3. LYRICA [Concomitant]
     Active Substance: PREGABALIN
  4. HYDROCODONE [Concomitant]
     Active Substance: HYDROCODONE
  5. CYMBALTA [Suspect]
     Active Substance: DULOXETINE HYDROCHLORIDE
     Indication: DEPRESSION
     Dosage: 60 MG, QD
     Dates: start: 2010

REACTIONS (4)
  - Nausea [Unknown]
  - Drug dose omission [Unknown]
  - Dizziness [Unknown]
  - Hypertension [Recovered/Resolved]
